FAERS Safety Report 6112332-X (Version None)
Quarter: 2009Q1

REPORT INFORMATION
  Report Type: 
  Country: None (occurrence: None)
  Receive Date: 20090311
  Receipt Date: 20090311
  Transmission Date: 20090719
  Serious: Yes (Disabling)
  Sender: FDA-Public Use
  Company Number: None

PATIENT
  Sex: Female
  Weight: 43.0917 kg

DRUGS (2)
  1. GABAPENTIN [Suspect]
     Indication: ANIMAL BITE
     Dosage: DAY 1-3 NIGHT 4-6 MORN AND NIGHT
     Dates: start: 20090121, end: 20090125
  2. GABAPENTIN [Suspect]
     Indication: TREMOR
     Dosage: DAY 1-3 NIGHT 4-6 MORN AND NIGHT
     Dates: start: 20090121, end: 20090125

REACTIONS (4)
  - DIZZINESS [None]
  - DYSSTASIA [None]
  - GAIT DISTURBANCE [None]
  - SPEECH DISORDER [None]
